FAERS Safety Report 6672520-0 (Version None)
Quarter: 2010Q2

REPORT INFORMATION
  Report Type: 
  Country: None (occurrence: None)
  Receive Date: 20100408
  Receipt Date: 20100330
  Transmission Date: 20101027
  Serious: Yes (Hospitalization)
  Sender: FDA-Public Use
  Company Number: US-JNJFOC-20100400374

PATIENT
  Sex: Male
  Weight: 74.2 kg

DRUGS (5)
  1. REMICADE [Suspect]
     Indication: INFLAMMATORY BOWEL DISEASE
     Route: 042
  2. AZATHIOPRINE [Concomitant]
  3. BUDESONIDE [Concomitant]
  4. ANTIBIOTICS [Concomitant]
     Indication: INFLAMMATORY BOWEL DISEASE
  5. OMEPRAZOLE [Concomitant]

REACTIONS (1)
  - ILEAL STENOSIS [None]
